FAERS Safety Report 11323608 (Version 1)
Quarter: 2015Q3

REPORT INFORMATION
  Report Type: Spontaneous
  Country: FR (occurrence: FR)
  Receive Date: 20150730
  Receipt Date: 20150730
  Transmission Date: 20151125
  Serious: Yes (Life-Threatening, Other)
  Sender: FDA-Public Use
  Company Number: FR-GLAXOSMITHKLINE-B0521089A

PATIENT
  Age: 82 Year
  Sex: Female

DRUGS (7)
  1. LAMICTAL [Suspect]
     Active Substance: LAMOTRIGINE
     Indication: DEPRESSION
     Dosage: 25 MG, TID
     Route: 048
     Dates: start: 20070521, end: 20071009
  2. AKINETON [Concomitant]
     Active Substance: BIPERIDEN HYDROCHLORIDE
     Indication: PRODUCT USED FOR UNKNOWN INDICATION
     Route: 065
  3. SEROPLEX [Concomitant]
     Active Substance: ESCITALOPRAM OXALATE
     Indication: PRODUCT USED FOR UNKNOWN INDICATION
     Route: 048
     Dates: start: 200706
  4. ROCEPHINE [Concomitant]
     Active Substance: CEFTRIAXONE SODIUM
     Indication: PRODUCT USED FOR UNKNOWN INDICATION
     Route: 065
  5. LOVENOX [Concomitant]
     Active Substance: ENOXAPARIN SODIUM
     Indication: PRODUCT USED FOR UNKNOWN INDICATION
     Route: 065
  6. ATARAX [Concomitant]
     Active Substance: HYDROXYZINE\HYDROXYZINE HYDROCHLORIDE
     Indication: PRODUCT USED FOR UNKNOWN INDICATION
     Route: 048
     Dates: start: 20070925
  7. LYSANXIA [Concomitant]
     Active Substance: PRAZEPAM
     Indication: PRODUCT USED FOR UNKNOWN INDICATION
     Route: 048

REACTIONS (12)
  - Hypoventilation [Unknown]
  - Lung disorder [Recovered/Resolved with Sequelae]
  - Rales [Unknown]
  - Pulmonary mass [Unknown]
  - Respiratory disorder [Unknown]
  - Lung infiltration [Unknown]
  - Cough [Unknown]
  - C-reactive protein increased [Recovering/Resolving]
  - Respiratory disorder [Recovered/Resolved]
  - Dyspnoea [Recovered/Resolved]
  - Bronchitis [Unknown]
  - Productive cough [Recovered/Resolved]

NARRATIVE: CASE EVENT DATE: 200705
